FAERS Safety Report 21471865 (Version 1)
Quarter: 2022Q4

REPORT INFORMATION
  Report Type: Spontaneous
  Country: CN (occurrence: CN)
  Receive Date: 20221018
  Receipt Date: 20221018
  Transmission Date: 20230113
  Serious: Yes (Other)
  Sender: FDA-Public Use
  Company Number: CN-SA-SAC20221015000157

PATIENT
  Age: 81 Year
  Sex: Female
  Weight: 57 kg

DRUGS (15)
  1. OXALIPLATIN [Suspect]
     Active Substance: OXALIPLATIN
     Indication: Colon cancer
     Dosage: 100 MG Q3W
     Route: 041
     Dates: start: 20220523
  2. OXALIPLATIN [Suspect]
     Active Substance: OXALIPLATIN
     Dosage: 100 MG
     Route: 041
     Dates: start: 20220718
  3. OXALIPLATIN [Suspect]
     Active Substance: OXALIPLATIN
     Dosage: 100 MG
     Route: 041
     Dates: start: 20220808
  4. OXALIPLATIN [Suspect]
     Active Substance: OXALIPLATIN
     Dosage: 100 MG
     Route: 041
     Dates: start: 20220829
  5. OXALIPLATIN [Suspect]
     Active Substance: OXALIPLATIN
     Dosage: 100 MG D1
     Route: 041
     Dates: start: 20220926
  6. CAPECITABINE [Concomitant]
     Active Substance: CAPECITABINE
     Indication: Colon cancer
     Dosage: UNK
     Dates: start: 20220523
  7. CAPECITABINE [Concomitant]
     Active Substance: CAPECITABINE
     Dosage: UNK, 1.5 IN THE MORNING AND 1.0 G AT NIGHT D1 - 14
     Dates: start: 20220621
  8. CAPECITABINE [Concomitant]
     Active Substance: CAPECITABINE
     Dosage: 1.0 G, BID, CAPECITABINE 1.0 G IN THE MORNING AND AT NIGHT D1 - 14
     Dates: start: 20220718
  9. CAPECITABINE [Concomitant]
     Active Substance: CAPECITABINE
     Dosage: 1.0 G, BID, CAPECITABINE 1.0 G IN THE MORNING AND AT NIGHT D1 - 14
     Dates: start: 20220808
  10. CAPECITABINE [Concomitant]
     Active Substance: CAPECITABINE
     Dosage: 1.0 G, BID, CAPECITABINE 1.0 G IN THE MORNING AND AT NIGHT D1 - 14
     Dates: start: 20220829
  11. CAPECITABINE [Concomitant]
     Active Substance: CAPECITABINE
     Dosage: 1.0 G IN THE MORNING AND AT NIGHT D1 - 14
     Dates: start: 20220926
  12. TROPISETRON [Concomitant]
     Active Substance: TROPISETRON
     Indication: Nausea
     Dosage: UNK
     Dates: start: 20220926
  13. TROPISETRON [Concomitant]
     Active Substance: TROPISETRON
     Indication: Vomiting
  14. OLANZAPINE [Concomitant]
     Active Substance: OLANZAPINE
     Indication: Nausea
     Dosage: UNK
     Dates: start: 20220926
  15. OLANZAPINE [Concomitant]
     Active Substance: OLANZAPINE
     Indication: Vomiting

REACTIONS (1)
  - Neurotoxicity [Recovering/Resolving]

NARRATIVE: CASE EVENT DATE: 20220927
